FAERS Safety Report 5605476-X (Version None)
Quarter: 2008Q1

REPORT INFORMATION
  Report Type: 
  Country: None (occurrence: None)
  Receive Date: 20080124
  Receipt Date: 20080124
  Transmission Date: 20080703
  Serious: Yes (Hospitalization)
  Sender: FDA-Public Use
  Company Number: None

PATIENT
  Age: 51 Year
  Sex: Male

DRUGS (2)
  1. SULFAMETHOXAZOLE AND TRIMETHOPRIM [Suspect]
     Indication: ESCHERICHIA INFECTION
     Dosage: BID PO
     Route: 048
     Dates: start: 20071223, end: 20080110
  2. SULFAMETHOXAZOLE AND TRIMETHOPRIM [Suspect]
     Indication: ULCER
     Dosage: BID PO
     Route: 048
     Dates: start: 20071223, end: 20080110

REACTIONS (5)
  - AGRANULOCYTOSIS [None]
  - ANAEMIA [None]
  - ERYTHEMA MULTIFORME [None]
  - HEPATIC ENZYME INCREASED [None]
  - RASH [None]
